FAERS Safety Report 7235289-7 (Version None)
Quarter: 2011Q1

REPORT INFORMATION
  Report Type: 
  Country: None (occurrence: None)
  Receive Date: 20110120
  Receipt Date: 20110110
  Transmission Date: 20110831
  Serious: Yes (Hospitalization)
  Sender: FDA-Public Use
  Company Number: US-JNJFOC-20110102436

PATIENT
  Sex: Female
  Weight: 51.4 kg

DRUGS (3)
  1. PREVACID [Concomitant]
  2. HUMIRA [Concomitant]
  3. INFLIXIMAB, RECOMBINANT [Suspect]
     Indication: CROHN'S DISEASE
     Route: 042

REACTIONS (2)
  - WOUND COMPLICATION [None]
  - CROHN'S DISEASE [None]
